FAERS Safety Report 4813869-3 (Version None)
Quarter: 2005Q4

REPORT INFORMATION
  Report Type: 
  Country: None (occurrence: None)
  Receive Date: 20051028
  Receipt Date: 20050330
  Transmission Date: 20060501
  Serious: No
  Sender: FDA-Public Use
  Company Number: US-GLAXOSMITHKLINE-A0551940A

PATIENT
  Age: 73 Year
  Sex: Male

DRUGS (5)
  1. ADVAIR DISKUS 100/50 [Suspect]
     Dosage: 1PUFF TWICE PER DAY
     Route: 055
     Dates: start: 20020101
  2. SINGULAIR [Concomitant]
  3. DOXAZOSIN [Concomitant]
  4. ALPRAZOLAM [Concomitant]
  5. ALLEGRA [Concomitant]

REACTIONS (1)
  - MOUTH PLAQUE [None]
